FAERS Safety Report 7822320-0 (Version None)
Quarter: 2011Q4

REPORT INFORMATION
  Report Type: 
  Country: None (occurrence: None)
  Receive Date: 20111018
  Receipt Date: 20110106
  Transmission Date: 20120403
  Serious: No
  Sender: FDA-Public Use
  Company Number: US-ASTRAZENECA-2010SE57749

PATIENT
  Age: 16378 Day
  Sex: Female
  Weight: 72.6 kg

DRUGS (2)
  1. SYMBICORT [Suspect]
     Dosage: 80/4.5 UG UNKNOWN
     Route: 055
     Dates: start: 20100801
  2. SYMBICORT [Suspect]
     Dosage: 80/4.5 UG TWO PUFFS TWO TIMES A DAY
     Route: 055
     Dates: start: 20101115

REACTIONS (4)
  - COUGH [None]
  - BRONCHIAL SECRETION RETENTION [None]
  - WRONG DRUG ADMINISTERED [None]
  - DRUG INEFFECTIVE [None]
